FAERS Safety Report 10417746 (Version 3)
Quarter: 2014Q4

REPORT INFORMATION
  Report Type: Spontaneous
  Country: JP (occurrence: JP)
  Receive Date: 20140829
  Receipt Date: 20141113
  Transmission Date: 20150528
  Serious: Yes (Other)
  Sender: FDA-Public Use
  Company Number: JP-TEVA-505501ISR

PATIENT
  Age: 56 Year
  Sex: Male

DRUGS (3)
  1. ADRIAMYCIN [Suspect]
     Active Substance: DOXORUBICIN HYDROCHLORIDE
     Indication: OSTEOSARCOMA
     Dosage: 60 MG/M2, TWO COURSES
     Route: 065
  2. CISPLATIN. [Suspect]
     Active Substance: CISPLATIN
     Indication: OSTEOSARCOMA
     Dosage: 120 MG/M2, TWO COURSES
     Route: 065
  3. CAFFEINE. [Concomitant]
     Active Substance: CAFFEINE

REACTIONS (3)
  - Renal impairment [Recovering/Resolving]
  - Large intestine perforation [Recovered/Resolved with Sequelae]
  - Sepsis [Unknown]
